FAERS Safety Report 6875702-8 (Version None)
Quarter: 2010Q3

REPORT INFORMATION
  Report Type: 
  Country: None (occurrence: None)
  Receive Date: 20100727
  Receipt Date: 20070716
  Transmission Date: 20110219
  Serious: Yes (Hospitalization, Other)
  Sender: FDA-Public Use
  Company Number: US-PFIZER INC-2006151931

PATIENT
  Sex: Female
  Weight: 95.3 kg

DRUGS (2)
  1. CELEBREX [Suspect]
     Indication: OSTEOARTHRITIS
     Route: 048
     Dates: start: 20030107, end: 20030206
  2. VIOXX [Suspect]
     Indication: OSTEOARTHRITIS
     Dosage: 25MG AND 12.5MG,ONCE DAILY
     Route: 048
     Dates: start: 20030827

REACTIONS (2)
  - CEREBROVASCULAR ACCIDENT [None]
  - MYOCARDIAL INFARCTION [None]
